FAERS Safety Report 23127974 (Version 3)
Quarter: 2024Q2

REPORT INFORMATION
  Report Type: Spontaneous
  Country: JP (occurrence: JP)
  Receive Date: 20231031
  Receipt Date: 20240524
  Transmission Date: 20240716
  Serious: Yes (Hospitalization)
  Sender: FDA-Public Use
  Company Number: JP-IQVIA-JT2023JP000295

PATIENT
  Age: 76 Year
  Sex: Female
  Weight: 39.8 kg

DRUGS (20)
  1. FERRIC CITRATE ANHYDROUS [Suspect]
     Active Substance: FERRIC CITRATE ANHYDROUS
     Indication: Iron deficiency anaemia
     Dosage: 500 MILLIGRAM, QD
     Route: 048
  2. ENARODUSTAT [Suspect]
     Active Substance: ENARODUSTAT
     Indication: Nephrogenic anaemia
     Dosage: 2 MILLIGRAM, QD
     Route: 048
     Dates: start: 20230407, end: 20230808
  3. ASPIRIN [Concomitant]
     Active Substance: ASPIRIN
     Indication: Angina pectoris
     Dosage: 100 MILLIGRAM, QD
     Route: 048
  4. JARDIANCE [Concomitant]
     Active Substance: EMPAGLIFLOZIN
     Indication: Cardiac failure chronic
     Dosage: 10 MILLIGRAM, QD
     Route: 048
  5. JARDIANCE [Concomitant]
     Active Substance: EMPAGLIFLOZIN
     Indication: Diabetes mellitus
  6. MAGNESIUM OXIDE [Concomitant]
     Active Substance: MAGNESIUM OXIDE
     Indication: Constipation
     Dosage: 0.3 GRAM, QD
     Route: 048
     Dates: end: 20230809
  7. MAGNESIUM OXIDE [Concomitant]
     Active Substance: MAGNESIUM OXIDE
     Dosage: 330 MILLIGRAM, QD
     Route: 048
     Dates: start: 20230810, end: 20231003
  8. MAGNESIUM OXIDE [Concomitant]
     Active Substance: MAGNESIUM OXIDE
     Dosage: 330 MILLIGRAM, BID
     Route: 048
     Dates: start: 20231004
  9. LYRICA [Concomitant]
     Active Substance: PREGABALIN
     Indication: Neuralgia
     Dosage: 75 MILLIGRAM, QD
     Route: 048
     Dates: end: 20230926
  10. DOTINURAD [Concomitant]
     Active Substance: DOTINURAD
     Indication: Hyperuricaemia
     Dosage: 2 MILLIGRAM, QD
     Route: 048
     Dates: end: 20230926
  11. IVABRADINE HYDROCHLORIDE [Concomitant]
     Active Substance: IVABRADINE HYDROCHLORIDE
     Indication: Cardiac failure chronic
     Dosage: 7.5 MILLIGRAM, QD
     Route: 048
  12. LIPITOR [Concomitant]
     Active Substance: ATORVASTATIN CALCIUM
     Indication: Hypercholesterolaemia
     Dosage: 10 MILLIGRAM, QD
     Route: 048
  13. TOLVAPTAN [Concomitant]
     Active Substance: TOLVAPTAN
     Indication: Cardiac failure chronic
     Dosage: 15 MILLIGRAM, QD
     Route: 048
     Dates: end: 20230828
  14. TOLVAPTAN [Concomitant]
     Active Substance: TOLVAPTAN
     Dosage: 11.25 MILLIGRAM, QD
     Route: 048
     Dates: start: 20230829
  15. VONOPRAZAN FUMARATE [Concomitant]
     Active Substance: VONOPRAZAN FUMARATE
     Indication: Gastrooesophageal reflux disease
     Dosage: 10 MILLIGRAM, QD
     Route: 048
  16. MEXITIL [Concomitant]
     Active Substance: MEXILETINE HYDROCHLORIDE
     Indication: Arrhythmia
     Dosage: 100 MILLIGRAM, BID
     Route: 048
  17. AZOSEMIDE [Concomitant]
     Active Substance: AZOSEMIDE
     Indication: Cardiac failure chronic
     Dosage: 45 MILLIGRAM, QD
     Route: 048
     Dates: end: 20230808
  18. AZOSEMIDE [Concomitant]
     Active Substance: AZOSEMIDE
     Dosage: 30 MILLIGRAM, QD
     Route: 048
  19. KETOPROFEN [Concomitant]
     Active Substance: KETOPROFEN
     Indication: Back pain
     Dosage: 120 MILLIGRAM, QD
     Route: 062
  20. ENTRESTO [Concomitant]
     Active Substance: SACUBITRIL\VALSARTAN
     Indication: Cardiac failure chronic
     Dosage: 25 MILLIGRAM, QD
     Route: 048
     Dates: end: 20230829

REACTIONS (2)
  - Back pain [Not Recovered/Not Resolved]
  - Constipation [Not Recovered/Not Resolved]

NARRATIVE: CASE EVENT DATE: 20230804
